FAERS Safety Report 8576754-X (Version None)
Quarter: 2012Q3

REPORT INFORMATION
  Report Type: 
  Country: None (occurrence: None)
  Receive Date: 20120807
  Receipt Date: 20120112
  Transmission Date: 20120928
  Serious: No
  Sender: FDA-Public Use
  Company Number: US-ROCHE-GNE291610

PATIENT
  Sex: Female
  Weight: 68.1 kg

DRUGS (1)
  1. XOLAIR [Suspect]
     Indication: ASTHMA
     Dosage: UNK
     Dates: start: 20081110, end: 20081211

REACTIONS (3)
  - RASH ERYTHEMATOUS [None]
  - RASH [None]
  - RASH PRURITIC [None]
